FAERS Safety Report 14564569 (Version 21)
Quarter: 2020Q3

REPORT INFORMATION
  Report Type: Report from Study
  Country: DE (occurrence: DE)
  Receive Date: 20180222
  Receipt Date: 20200813
  Transmission Date: 20201102
  Serious: Yes (Hospitalization, Other)
  Sender: FDA-Public Use
  Company Number: DE-BRISTOL-MYERS SQUIBB COMPANY-BMS-2017-121065

PATIENT
  Age: 38 Year
  Sex: Male
  Weight: 90 kg

DRUGS (8)
  1. IPILIMUMAB [Suspect]
     Active Substance: IPILIMUMAB
     Indication: LUNG NEOPLASM MALIGNANT
     Dosage: 273 ABSENT, Q3WK
     Route: 065
     Dates: start: 20170925, end: 20170925
  2. DOXYCYCLIN [DOXYCYCLINE] [Concomitant]
     Active Substance: DOXYCYCLINE
     Indication: PRODUCT USED FOR UNKNOWN INDICATION
     Dosage: 25 MILLIGRAM, BID
     Route: 048
     Dates: start: 20200218
  3. FORTECORTIN [DEXAMETHASONE] [Concomitant]
     Active Substance: DEXAMETHASONE
     Indication: PRODUCT USED FOR UNKNOWN INDICATION
     Dosage: 16 MILLIGRAM, QD
     Route: 048
     Dates: start: 20170923
  4. NIVOLUMAB [Suspect]
     Active Substance: NIVOLUMAB
     Indication: LUNG NEOPLASM MALIGNANT
     Dosage: 91 ABSENT, Q3WK
     Route: 065
     Dates: start: 20170925, end: 20170925
  5. IPILIMUMAB [Suspect]
     Active Substance: IPILIMUMAB
     Indication: MALIGNANT MELANOMA
     Dosage: 270 ABSENT, Q3WK
     Route: 065
     Dates: start: 20170810, end: 20170831
  6. NIVOLUMAB [Suspect]
     Active Substance: NIVOLUMAB
     Dosage: 240 ABSENT, Q2WK
     Route: 065
     Dates: start: 20190820, end: 20190820
  7. NIVOLUMAB [Suspect]
     Active Substance: NIVOLUMAB
     Indication: MALIGNANT MELANOMA
     Dosage: 90 ABSENT, Q3WK
     Route: 065
     Dates: start: 20170810, end: 20170831
  8. STEROFUNDIN [Concomitant]
     Active Substance: CALCIUM CHLORIDE\MAGNESIUM CHLORIDE\POTASSIUM CHLORIDE\SODIUM ACETATE\SODIUM CHLORIDE
     Indication: PRODUCT USED FOR UNKNOWN INDICATION
     Dosage: 1000 MILLILITER, ONCE
     Route: 042
     Dates: start: 20200616, end: 20200616

REACTIONS (17)
  - Autoimmune hepatitis [Not Recovered/Not Resolved]
  - Sinusitis [Unknown]
  - Arthralgia [Unknown]
  - Disease progression [Unknown]
  - Rhinitis allergic [Unknown]
  - Pneumonia [Recovered/Resolved]
  - Autoimmune thyroiditis [Unknown]
  - Rash pustular [Unknown]
  - Decreased appetite [Unknown]
  - Constipation [Unknown]
  - Neurological symptom [Unknown]
  - Headache [Unknown]
  - Nausea [Unknown]
  - Alanine aminotransferase increased [Unknown]
  - Pneumonia legionella [Unknown]
  - Pyrexia [Unknown]
  - Acne [Unknown]

NARRATIVE: CASE EVENT DATE: 20170824
